FAERS Safety Report 7899054-X (Version None)
Quarter: 2011Q4

REPORT INFORMATION
  Report Type: 
  Country: None (occurrence: None)
  Receive Date: 20111107
  Receipt Date: 20111024
  Transmission Date: 20120403
  Serious: Yes (Congenital Anomaly)
  Sender: FDA-Public Use
  Company Number: US-ROCHE-GNE321575

PATIENT
  Sex: Male

DRUGS (4)
  1. PREVACID [Concomitant]
     Indication: GASTROOESOPHAGEAL REFLUX DISEASE
     Route: 048
  2. MULTI-VITAMIN [Concomitant]
     Route: 048
  3. RANITIDINE [Concomitant]
     Indication: GASTROOESOPHAGEAL REFLUX DISEASE
     Route: 048
  4. OMALIZUMAB [Suspect]
     Indication: ASTHMA
     Route: 064

REACTIONS (2)
  - HYDROCELE [None]
  - MATERNAL EXPOSURE TIMING UNSPECIFIED [None]
